FAERS Safety Report 8443495-9 (Version None)
Quarter: 2012Q2

REPORT INFORMATION
  Report Type: 
  Country: None (occurrence: None)
  Receive Date: 20120618
  Receipt Date: 20120611
  Transmission Date: 20120825
  Serious: Yes (Other)
  Sender: FDA-Public Use
  Company Number: US-BAYER-2012-034346

PATIENT
  Age: 16 Year
  Sex: Female
  Weight: 66.213 kg

DRUGS (2)
  1. MIRENA [Suspect]
     Indication: CONTRACEPTION
     Dosage: 20 MCG/24HR, CONT
     Route: 015
     Dates: start: 20120404
  2. MIRENA [Suspect]
     Indication: MENORRHAGIA

REACTIONS (3)
  - LOSS OF CONSCIOUSNESS [None]
  - SYNCOPE [None]
  - DIZZINESS [None]
